FAERS Safety Report 13289360 (Version 3)
Quarter: 2017Q2

REPORT INFORMATION
  Report Type: Spontaneous
  Country: FR (occurrence: FR)
  Receive Date: 20170303
  Receipt Date: 20170505
  Transmission Date: 20170830
  Serious: Yes (Other)
  Sender: FDA-Public Use
  Company Number: FR-ROCHE-1900624

PATIENT
  Age: 39 Year
  Sex: Female

DRUGS (3)
  1. BACTRIM [Suspect]
     Active Substance: SULFAMETHOXAZOLE\TRIMETHOPRIM
     Indication: ANTIFUNGAL PROPHYLAXIS
     Dosage: FOR TWO MONTHS
     Route: 048
     Dates: start: 20161213, end: 20170213
  2. AVASTIN [Suspect]
     Active Substance: BEVACIZUMAB
     Indication: GLIOBLASTOMA
     Dosage: FORM STRENGTH: 25 MG/ML?DOSE:10MG/KG?LAST INJECTIONS OF BEVACIZUMAB WERE ON 06/DEC/2016, 20/DEC/2016
     Route: 042
     Dates: start: 20160628, end: 20170103
  3. BELUSTINE [Suspect]
     Active Substance: LOMUSTINE
     Indication: GLIOBLASTOMA
     Dosage: LAST ADMINISTRATION OF BELUSTINE WAS ON 01/NOV/2016.
     Route: 048
     Dates: start: 20160628, end: 20161220

REACTIONS (2)
  - Cholestasis [Not Recovered/Not Resolved]
  - Hepatocellular injury [Recovering/Resolving]

NARRATIVE: CASE EVENT DATE: 20161220
